FAERS Safety Report 9730374 (Version 2)
Quarter: 2015Q4

REPORT INFORMATION
  Report Type: Report from Study
  Country: US (occurrence: US)
  Receive Date: 20131204
  Receipt Date: 20151021
  Transmission Date: 20160305
  Serious: Yes (Other)
  Sender: FDA-Public Use
  Company Number: US-ROCHE-1313811

PATIENT
  Sex: Female

DRUGS (7)
  1. XOPENEX HFA [Concomitant]
     Active Substance: LEVALBUTEROL TARTRATE
     Indication: ASTHMA
     Route: 065
  2. VITAMIN B12 [Concomitant]
     Active Substance: CYANOCOBALAMIN
     Route: 060
  3. LUCENTIS [Suspect]
     Active Substance: RANIBIZUMAB
     Indication: NEOVASCULAR AGE-RELATED MACULAR DEGENERATION
     Route: 050
  4. LOSARTAN. [Concomitant]
     Active Substance: LOSARTAN
     Dosage: DAILY
     Route: 065
  5. LATANOPROST. [Concomitant]
     Active Substance: LATANOPROST
     Dosage: 1 DROP DAILY EACH EYE
     Route: 065
  6. XOPENEX HFA [Concomitant]
     Active Substance: LEVALBUTEROL TARTRATE
     Indication: CHRONIC OBSTRUCTIVE PULMONARY DISEASE
  7. HYDROCHLOROTHIAZIDE. [Concomitant]
     Active Substance: HYDROCHLOROTHIAZIDE
     Dosage: DAILY
     Route: 065

REACTIONS (2)
  - Aortic aneurysm [Unknown]
  - Hypoacusis [Unknown]
